FAERS Safety Report 16887414 (Version 1)
Quarter: 2019Q4

REPORT INFORMATION
  Report Type: Report from Study
  Country: US (occurrence: US)
  Receive Date: 20191004
  Receipt Date: 20191004
  Transmission Date: 20200122
  Serious: Yes (Hospitalization)
  Sender: FDA-Public Use
  Company Number: US-BAXTER-2019BAX019274

PATIENT
  Age: 13 Year
  Sex: Female
  Weight: 40 kg

DRUGS (5)
  1. VINCRISTINE SULFATE. [Suspect]
     Active Substance: VINCRISTINE SULFATE
     Dosage: LAST DOSE PRIOR TO SAE
     Route: 042
     Dates: start: 20190822, end: 20190822
  2. CYCLOPHOSPHAMIDE FOR INJECTION, USP [Suspect]
     Active Substance: CYCLOPHOSPHAMIDE
     Indication: EMBRYONAL RHABDOMYOSARCOMA
     Dosage: COURSE 1, LAST DOSE PRIOR TO SAE, TOTAL DOSE: 1608 MG, OVER 60 MINUTES ON DAY 1 OF CYCLES 1 AND 3
     Route: 042
     Dates: start: 20190815, end: 20190815
  3. VINCRISTINE SULFATE. [Suspect]
     Active Substance: VINCRISTINE SULFATE
     Indication: EMBRYONAL RHABDOMYOSARCOMA
     Dosage: OVER 1 MINUTE OR INFUSION VIA MINIBAG ON DAYS 1, 8, AND 15, TOTAL DOSE: 4 MG
     Route: 042
     Dates: start: 20190815
  4. TEMSIROLIMUS. [Suspect]
     Active Substance: TEMSIROLIMUS
     Indication: EMBRYONAL RHABDOMYOSARCOMA
     Dosage: LAST DOSE PRIOR TO SAE, MAX DOSE 25 MG, OVER 30-60 MINUTES ON DAYS 1, 8, AND 15, TOTAL DOSE: 20.1 MG
     Route: 042
     Dates: start: 20190822, end: 20190822
  5. DACTINOMYCIN [Suspect]
     Active Substance: DACTINOMYCIN
     Indication: EMBRYONAL RHABDOMYOSARCOMA
     Dosage: COURSE 1, LAST DOSE PRIOR TO SAE, OVER 1-5 MINUTES ON DAY 1 OF CYCLES 1 AND 3, TOTAL DOSE: 2.025 MG
     Route: 042
     Dates: start: 20190815, end: 20190815

REACTIONS (1)
  - Dehydration [Recovered/Resolved]

NARRATIVE: CASE EVENT DATE: 20190823
